FAERS Safety Report 15517716 (Version 2)
Quarter: 2018Q4

REPORT INFORMATION
  Report Type: Spontaneous
  Country: DE (occurrence: DE)
  Receive Date: 20181017
  Receipt Date: 20181130
  Transmission Date: 20190205
  Serious: Yes (Hospitalization, Other)
  Sender: FDA-Public Use
  Company Number: DE-009507513-1810DEU007020

PATIENT
  Age: 40 Year
  Sex: Female
  Weight: 67 kg

DRUGS (4)
  1. IMPLANON [Suspect]
     Active Substance: ETONOGESTREL
     Indication: CONTRACEPTION
     Dosage: ONE ROD
     Route: 059
     Dates: start: 20181002, end: 20181009
  2. ETONOGESTREL IMPLANT [Concomitant]
     Dosage: UNK
  3. IMPLANON [Suspect]
     Active Substance: ETONOGESTREL
     Indication: DYSMENORRHOEA
  4. ETONOGESTREL IMPLANT [Concomitant]
     Dosage: UNK

REACTIONS (6)
  - Cellulitis staphylococcal [Recovering/Resolving]
  - General anaesthesia [Recovered/Resolved]
  - Hyperaesthesia [Unknown]
  - Complication of device removal [Recovered/Resolved]
  - Device deployment issue [Recovered/Resolved]
  - Pain [Unknown]

NARRATIVE: CASE EVENT DATE: 201810
